FAERS Safety Report 4829334-3 (Version None)
Quarter: 2005Q4

REPORT INFORMATION
  Report Type: 
  Country: None (occurrence: None)
  Receive Date: 20051116
  Receipt Date: 20051111
  Transmission Date: 20060501
  Serious: Yes (Life-Threatening, Hospitalization)
  Sender: FDA-Public Use
  Company Number: PHBS2005FR16648

PATIENT
  Age: 71 Year
  Sex: Female
  Weight: 71 kg

DRUGS (4)
  1. LOPRESSOR [Suspect]
     Indication: HYPERTENSION
     Route: 048
     Dates: start: 19850101, end: 20050919
  2. LUMITENS [Suspect]
     Dosage: 20 MG, UNK
     Dates: start: 19850101, end: 20050919
  3. TEMESTA [Concomitant]
  4. DEROXAT [Concomitant]
     Dosage: 20 MG, UNK

REACTIONS (2)
  - DIZZINESS [None]
  - HYPOKALAEMIA [None]
